FAERS Safety Report 9493200 (Version 3)
Quarter: 2013Q4

REPORT INFORMATION
  Report Type: Spontaneous
  Country: AR (occurrence: AR)
  Receive Date: 20130902
  Receipt Date: 20131128
  Transmission Date: 20140711
  Serious: Yes (Other)
  Sender: FDA-Public Use
  Company Number: AR-AMGEN-ARGSP2013019775

PATIENT
  Age: 70 Year
  Sex: Female

DRUGS (7)
  1. ENBREL [Suspect]
     Indication: PSORIATIC ARTHROPATHY
     Dosage: 25 MG, 2X/WEEK
     Route: 065
     Dates: start: 20060728
  2. LEVOTHYROXINE [Concomitant]
     Dosage: 100 MG, 1X/DAY
  3. LOTRIAL                            /00574902/ [Concomitant]
     Dosage: UNK, 1X/DAY
  4. IMURAN                             /00001501/ [Concomitant]
     Dosage: UNK, 2X/DAY
  5. ARTRAIT                            /00113801/ [Concomitant]
     Dosage: 7.5 MG, WEEKLY
  6. FOLIC ACID [Concomitant]
     Dosage: UNK, WEEKLY
  7. BETAHISTINE [Concomitant]
     Dosage: UNK, 1X/DAY

REACTIONS (6)
  - Gait disturbance [Recovered/Resolved]
  - Cataract [Recovering/Resolving]
  - Inflammation [Recovering/Resolving]
  - Pain [Recovered/Resolved]
  - Arthritis [Recovered/Resolved]
  - Psoriasis [Not Recovered/Not Resolved]
